FAERS Safety Report 5833460-X (Version None)
Quarter: 2008Q3

REPORT INFORMATION
  Report Type: 
  Country: None (occurrence: None)
  Receive Date: 20080731
  Receipt Date: 20080722
  Transmission Date: 20090109
  Serious: Yes (Hospitalization)
  Sender: FDA-Public Use
  Company Number: ALA_00143_2008

PATIENT
  Sex: Female
  Weight: 77.5651 kg

DRUGS (10)
  1. REGLAN [Suspect]
     Indication: VOMITING
     Dosage: 10 MG TID DRUG TAKEN 1/2 HR AC ORAL; 5 MG TID DRUG TAKEN 1/2 HR AC ORAL
     Route: 048
     Dates: start: 20080605, end: 20080622
  2. REGLAN [Suspect]
     Indication: VOMITING
     Dosage: 10 MG TID DRUG TAKEN 1/2 HR AC ORAL; 5 MG TID DRUG TAKEN 1/2 HR AC ORAL
     Route: 048
     Dates: start: 20080623
  3. HYDROXYZINE PAMOATE [Suspect]
     Indication: FIBROMYALGIA
     Dosage: 50 MG TID ORAL; 50 MG TID ORAL
     Route: 048
     Dates: start: 20070104, end: 20080527
  4. HYDROXYZINE PAMOATE [Suspect]
     Indication: OSTEOARTHRITIS
     Dosage: 50 MG TID ORAL; 50 MG TID ORAL
     Route: 048
     Dates: start: 20070104, end: 20080527
  5. HYDROXYZINE PAMOATE [Suspect]
     Indication: FIBROMYALGIA
     Dosage: 50 MG TID ORAL; 50 MG TID ORAL
     Route: 048
     Dates: start: 20080528, end: 20080624
  6. HYDROXYZINE PAMOATE [Suspect]
     Indication: OSTEOARTHRITIS
     Dosage: 50 MG TID ORAL; 50 MG TID ORAL
     Route: 048
     Dates: start: 20080528, end: 20080624
  7. VICODIN [Concomitant]
  8. ACIPHEX [Concomitant]
  9. SOMA [Concomitant]
  10. VALIUM [Concomitant]

REACTIONS (9)
  - AMMONIA INCREASED [None]
  - ATAXIA [None]
  - COMPUTERISED TOMOGRAM ABNORMAL [None]
  - CONVULSION [None]
  - DYSTONIA [None]
  - ENCEPHALOPATHY [None]
  - OVERDOSE [None]
  - PARTIAL SEIZURES [None]
  - SHOCK [None]
